FAERS Safety Report 4343928-3 (Version None)
Quarter: 2004Q2

REPORT INFORMATION
  Report Type: 
  Country: None (occurrence: None)
  Receive Date: 20040419
  Receipt Date: 20040406
  Transmission Date: 20050107
  Serious: Yes (Hospitalization)
  Sender: FDA-Public Use
  Company Number: US-JNJFOC-20040401251

PATIENT
  Age: 56 Year
  Sex: Male
  Weight: 93.441 kg

DRUGS (18)
  1. INFLIXIMAB (INFLIXIMAB, RECOMBINANT) LYOPHILIZED POWDER [Suspect]
     Indication: RHEUMATOID ARTHRITIS
     Dosage: INTRAVENOUS
     Route: 042
     Dates: start: 20000524, end: 20010901
  2. FOSAMAX [Concomitant]
  3. METOPROLOL (METOPROLOL) [Concomitant]
  4. POTASSIUM (POTASSIUM) [Concomitant]
  5. PREVACID [Concomitant]
  6. VIOXX [Concomitant]
  7. ZANAFLEX [Concomitant]
  8. HYDRODIURIL [Concomitant]
  9. IBUPROFEN [Concomitant]
  10. NITROSTAT [Concomitant]
  11. REGLAN [Concomitant]
  12. ZOCOR [Concomitant]
  13. CALCIUM (CALCIUM) [Concomitant]
  14. MINOCIN [Concomitant]
  15. ASPIRIN (AETYLSALICYLIC ACID) [Concomitant]
  16. NITROBID (GLYCERYL TRINITRATE) [Concomitant]
  17. ENBREL [Concomitant]
  18. MULTIVITAMIN (MULTIVITAMINS) [Concomitant]

REACTIONS (4)
  - CARDIAC VENTRICULAR DISORDER [None]
  - CHEST PAIN [None]
  - CORONARY ARTERY STENOSIS [None]
  - EXERCISE ELECTROCARDIOGRAM ABNORMAL [None]
